FAERS Safety Report 21724110 (Version 1)
Quarter: 2022Q4

REPORT INFORMATION
  Report Type: Spontaneous
  Country: FR (occurrence: FR)
  Receive Date: 20221213
  Receipt Date: 20221213
  Transmission Date: 20230112
  Serious: Yes (Other)
  Sender: FDA-Public Use
  Company Number: None

PATIENT
  Sex: Male
  Weight: 83 kg

DRUGS (1)
  1. DALBAVANCIN HYDROCHLORIDE [Suspect]
     Active Substance: DALBAVANCIN HYDROCHLORIDE
     Indication: Staphylococcal infection
     Dosage: 1ERE INJECTION
     Dates: start: 20221126, end: 20221126

REACTIONS (1)
  - Vasodilatation [Recovered/Resolved]

NARRATIVE: CASE EVENT DATE: 20221126
